FAERS Safety Report 4853553-3 (Version None)
Quarter: 2005Q4

REPORT INFORMATION
  Report Type: 
  Country: None (occurrence: None)
  Receive Date: 20051214
  Receipt Date: 20051209
  Transmission Date: 20060501
  Serious: Yes (Death)
  Sender: FDA-Public Use
  Company Number: PHRM2005FR03235

PATIENT
  Sex: Male

DRUGS (1)
  1. TRILEPTAL [Suspect]
     Indication: PAIN
     Dosage: 300 MG, QD
     Route: 048

REACTIONS (1)
  - COMPLETED SUICIDE [None]
